FAERS Safety Report 9376111 (Version 1)
Quarter: 2013Q3

REPORT INFORMATION
  Report Type: Spontaneous
  Country: US (occurrence: US)
  Receive Date: 20130701
  Receipt Date: 20130701
  Transmission Date: 20140515
  Serious: Yes (Life-Threatening, Hospitalization)
  Sender: FDA-Public Use
  Company Number: GXBR2013US001280

PATIENT
  Age: 23 Year
  Sex: Female

DRUGS (2)
  1. CEFTRIAXONE [Suspect]
     Indication: SEXUALLY TRANSMITTED DISEASE
     Dosage: 250 MG, ONCE/SINGLE
     Route: 030
     Dates: start: 201306, end: 201306
  2. AZITHROMYCIN [Concomitant]
     Indication: SEXUALLY TRANSMITTED DISEASE
     Dosage: 1 UNK, UNK
     Route: 048

REACTIONS (4)
  - Apnoea [Recovered/Resolved]
  - Unresponsive to stimuli [Recovered/Resolved]
  - Syncope [Recovered/Resolved]
  - Dizziness [Recovered/Resolved]
